FAERS Safety Report 4946323-9 (Version None)
Quarter: 2006Q1

REPORT INFORMATION
  Report Type: 
  Country: None (occurrence: None)
  Receive Date: 20060316
  Receipt Date: 20060316
  Transmission Date: 20060701
  Serious: Yes (Hospitalization)
  Sender: FDA-Public Use
  Company Number: None

PATIENT
  Age: 53 Year
  Sex: Male
  Weight: 96.4 kg

DRUGS (13)
  1. TRAMADOL HCL [Suspect]
  2. FOLIC ACID [Concomitant]
  3. THIAMINE HCL [Concomitant]
  4. CYCLOBENZAPINE HCL [Concomitant]
  5. IBUPROFEN [Concomitant]
  6. HYDROXYZINE PAMOATE [Concomitant]
  7. SODIUM CHLORIDE [Concomitant]
  8. ACETAMINOPHEN [Concomitant]
  9. ADALAT CC [Concomitant]
  10. MIRTAZAPINE [Concomitant]
  11. KETOROLAC TROMETHAMINE [Concomitant]
  12. CLONIDINE HCL [Concomitant]
  13. LORATADINE [Concomitant]

REACTIONS (1)
  - SEROTONIN SYNDROME [None]
